FAERS Safety Report 5324083-X (Version None)
Quarter: 2007Q2

REPORT INFORMATION
  Report Type: 
  Country: None (occurrence: None)
  Receive Date: 20070507
  Receipt Date: 20070426
  Transmission Date: 20071010
  Serious: Yes (Death, Other)
  Sender: FDA-Public Use
  Company Number: GXKR2007GB03854

PATIENT
  Sex: Male

DRUGS (9)
  1. CO-AMOXICLAV (NGX)(AMOXICILLIN, CLAVULANATE) UNKNOWN [Suspect]
     Indication: LOWER RESPIRATORY TRACT INFECTION
     Dosage: 1.2G, TID
     Dates: start: 20070101, end: 20070116
  2. CO-AMOXICLAV (NGX)(AMOXICILLIN, CLAVULANATE) UNKNOWN [Suspect]
     Indication: LOWER RESPIRATORY TRACT INFECTION
     Dosage: 1.2G, TID
     Dates: start: 20070108
  3. ASPIRIN [Concomitant]
  4. ISOSORBIDE MONONITRATE [Concomitant]
  5. LANSOPRAZOLE [Concomitant]
  6. MIRTAZAPINE [Concomitant]
  7. NYSTATIN [Concomitant]
  8. QUETIAPINE FUMARATE [Concomitant]
  9. TOLTERODINE TARTRATE [Concomitant]

REACTIONS (5)
  - ASTHENIA [None]
  - CLOSTRIDIUM DIFFICILE COLITIS [None]
  - DIARRHOEA [None]
  - LETHARGY [None]
  - ORAL INTAKE REDUCED [None]
